FAERS Safety Report 15614915 (Version 1)
Quarter: 2018Q4

REPORT INFORMATION
  Report Type: Spontaneous
  Country: US (occurrence: US)
  Receive Date: 20181114
  Receipt Date: 20181114
  Transmission Date: 20190205
  Serious: No
  Sender: FDA-Public Use
  Company Number: US-ELI_LILLY_AND_COMPANY-US201810015299

PATIENT
  Sex: Female
  Weight: 51 kg

DRUGS (5)
  1. TYVASO [Suspect]
     Active Substance: TREPROSTINIL
     Indication: PULMONARY ARTERIAL HYPERTENSION
     Dosage: 3-4 BREATHS (INHALED), QID
     Route: 055
     Dates: start: 20150813
  2. TADALAFIL. [Suspect]
     Active Substance: TADALAFIL
     Indication: PRODUCT USED FOR UNKNOWN INDICATION
     Dosage: UNK, UNKNOWN
     Route: 065
     Dates: start: 20181018, end: 20181030
  3. ADCIRCA [Suspect]
     Active Substance: TADALAFIL
     Indication: PULMONARY ARTERIAL HYPERTENSION
     Dosage: UNK, UNKNOWN
     Route: 065
     Dates: start: 20181030
  4. TYVASO [Suspect]
     Active Substance: TREPROSTINIL
     Dosage: 3-4 BREATHS (INHALED), QID
     Route: 055
     Dates: start: 20150813
  5. OPSUMIT [Suspect]
     Active Substance: MACITENTAN
     Indication: PULMONARY ARTERIAL HYPERTENSION
     Dosage: UNK, UNKNOWN
     Route: 065

REACTIONS (6)
  - Nausea [Unknown]
  - Dyspepsia [Not Recovered/Not Resolved]
  - Malaise [Unknown]
  - Headache [Recovering/Resolving]
  - Chills [Not Recovered/Not Resolved]
  - Asthenia [Unknown]
